FAERS Safety Report 7693349-0 (Version None)
Quarter: 2011Q3

REPORT INFORMATION
  Report Type: 
  Country: None (occurrence: None)
  Receive Date: 20110819
  Receipt Date: 20110817
  Transmission Date: 20111222
  Serious: Yes (Death)
  Sender: FDA-Public Use
  Company Number: US-PFIZER INC-2011149914

PATIENT
  Sex: Female

DRUGS (7)
  1. LYRICA [Suspect]
     Dosage: 225 MG, 3X/DAY
     Route: 048
     Dates: start: 20080101
  2. NEXIUM [Concomitant]
     Dosage: UNK
  3. ZYVOX [Concomitant]
     Dosage: UNK
  4. ZOLOFT [Concomitant]
     Dosage: 100 MG DAILY
  5. PROVENTIL [Concomitant]
     Dosage: UNK
  6. XYZAL [Concomitant]
     Dosage: 1 DAILY
  7. FLEXERIL [Concomitant]
     Dosage: ONE 4X/DAY

REACTIONS (1)
  - DEATH [None]
